FAERS Safety Report 6634584-X (Version None)
Quarter: 2010Q1

REPORT INFORMATION
  Report Type: 
  Country: None (occurrence: None)
  Receive Date: 20100315
  Receipt Date: 20100311
  Transmission Date: 20100710
  Serious: Yes (Other)
  Sender: FDA-Public Use
  Company Number: A0849570A

PATIENT
  Sex: Female

DRUGS (1)
  1. FLONASE [Suspect]
     Indication: DRUG USE FOR UNKNOWN INDICATION
     Dosage: 2SPR TWICE PER DAY
     Route: 065
     Dates: start: 20100101

REACTIONS (8)
  - DIZZINESS [None]
  - GLOSSODYNIA [None]
  - HEADACHE [None]
  - MALAISE [None]
  - PHARYNGEAL HAEMORRHAGE [None]
  - THROAT IRRITATION [None]
  - TONGUE HAEMORRHAGE [None]
  - TREMOR [None]
